FAERS Safety Report 18746403 (Version 1)
Quarter: 2021Q1

REPORT INFORMATION
  Report Type: Spontaneous
  Country: US (occurrence: US)
  Receive Date: 20210115
  Receipt Date: 20210115
  Transmission Date: 20210419
  Serious: No
  Sender: FDA-Public Use
  Company Number: US-GLAXOSMITHKLINE-US2021008987

PATIENT
  Age: 38 Year
  Sex: Female

DRUGS (1)
  1. NICODERM CQ [Suspect]
     Active Substance: NICOTINE
     Indication: SMOKING CESSATION THERAPY
     Dosage: UNK
     Dates: start: 20210110, end: 20210113

REACTIONS (3)
  - Application site erythema [Unknown]
  - Application site pruritus [Unknown]
  - Application site reaction [Unknown]

NARRATIVE: CASE EVENT DATE: 20210112
